FAERS Safety Report 4367225-5 (Version None)
Quarter: 2004Q2

REPORT INFORMATION
  Report Type: 
  Country: None (occurrence: None)
  Receive Date: 20040526
  Receipt Date: 20040415
  Transmission Date: 20050107
  Serious: Yes (Death)
  Sender: FDA-Public Use
  Company Number: 1603

PATIENT
  Sex: Male

DRUGS (1)
  1. AVINZA [Suspect]
     Indication: BONE PAIN
     Dosage: 30 MG QD PO
     Route: 048

REACTIONS (1)
  - RESPIRATORY DEPRESSION [None]
